FAERS Safety Report 20947464 (Version 1)
Quarter: 2022Q2

REPORT INFORMATION
  Report Type: Spontaneous
  Country: CN (occurrence: CN)
  Receive Date: 20220610
  Receipt Date: 20220610
  Transmission Date: 20220720
  Serious: Yes (Other)
  Sender: FDA-Public Use
  Company Number: None

PATIENT
  Age: 28 Year
  Sex: Female
  Weight: 54 kg

DRUGS (4)
  1. CYCLOPHOSPHAMIDE [Suspect]
     Active Substance: CYCLOPHOSPHAMIDE
     Indication: Breast cancer female
     Dosage: 900 MG, QD
     Route: 041
     Dates: start: 20220420, end: 20220420
  2. CYCLOPHOSPHAMIDE [Suspect]
     Active Substance: CYCLOPHOSPHAMIDE
     Dosage: UNK, QD, DOSE RE-INTRODUCED
     Route: 041
  3. DOCETAXEL [Suspect]
     Active Substance: DOCETAXEL
     Indication: Breast cancer female
     Dosage: 120 MG, QD, ROUTE: INTRA-PUMP INJECTION
     Route: 050
     Dates: start: 20220420, end: 20220420
  4. DOCETAXEL [Suspect]
     Active Substance: DOCETAXEL
     Dosage: UNK, QD, ROUTE: INTRA-PUMP INJECTION
     Route: 050

REACTIONS (2)
  - Gastrointestinal disorder [Unknown]
  - Flushing [Unknown]

NARRATIVE: CASE EVENT DATE: 20220421
